FAERS Safety Report 5531447-8 (Version None)
Quarter: 2007Q4

REPORT INFORMATION
  Report Type: 
  Country: None (occurrence: None)
  Receive Date: 20071203
  Receipt Date: 20071119
  Transmission Date: 20080405
  Serious: Yes (Death)
  Sender: FDA-Public Use
  Company Number: US-JNJFOC-20071109836

PATIENT
  Sex: Female

DRUGS (7)
  1. REMICADE [Suspect]
  2. REMICADE [Suspect]
  3. REMICADE [Suspect]
  4. REMICADE [Suspect]
  5. REMICADE [Suspect]
  6. REMICADE [Suspect]
     Indication: CROHN'S DISEASE
  7. PREDNISONE TAB [Concomitant]
     Indication: DRUG USE FOR UNKNOWN INDICATION

REACTIONS (7)
  - ANAEMIA [None]
  - CARDIAC ARREST [None]
  - CROHN'S DISEASE [None]
  - DIABETES MELLITUS [None]
  - FALL [None]
  - GASTROINTESTINAL HAEMORRHAGE [None]
  - TACHYCARDIA [None]
